FAERS Safety Report 11909676 (Version 1)
Quarter: 2016Q1

REPORT INFORMATION
  Report Type: Spontaneous
  Country: US (occurrence: None)
  Receive Date: 20160111
  Receipt Date: 20160111
  Transmission Date: 20160526
  Serious: Yes (Other)
  Sender: FDA-Public Use
  Company Number: None

PATIENT
  Age: 43 Year
  Sex: Male

DRUGS (5)
  1. FENOFIBRATE. [Concomitant]
     Active Substance: FENOFIBRATE
  2. ZALEPLON. [Suspect]
     Active Substance: ZALEPLON
     Indication: INITIAL INSOMNIA
     Route: 048
     Dates: start: 20151015, end: 20160106
  3. CRESTOR [Concomitant]
     Active Substance: ROSUVASTATIN CALCIUM
  4. ZALEPLON. [Suspect]
     Active Substance: ZALEPLON
     Indication: MIDDLE INSOMNIA
     Route: 048
     Dates: start: 20151015, end: 20160106
  5. IBUPROFEN. [Concomitant]
     Active Substance: IBUPROFEN

REACTIONS (2)
  - Agitation [None]
  - Feeling abnormal [None]

NARRATIVE: CASE EVENT DATE: 20160110
